FAERS Safety Report 8256224-9 (Version None)
Quarter: 2012Q2

REPORT INFORMATION
  Report Type: 
  Country: None (occurrence: None)
  Receive Date: 20120403
  Receipt Date: 20120319
  Transmission Date: 20120825
  Serious: Yes (Other)
  Sender: FDA-Public Use
  Company Number: US-ROCHE-791359

PATIENT
  Age: 14 Year
  Sex: Female

DRUGS (4)
  1. TAMIFLU [Suspect]
     Route: 065
     Dates: start: 20091016, end: 20091023
  2. TAMIFLU [Suspect]
     Route: 065
     Dates: start: 20091101, end: 20091114
  3. TAMIFLU [Suspect]
     Indication: H1N1 INFLUENZA
     Route: 065
     Dates: start: 20091013, end: 20091016
  4. ZANAMIVIR [Concomitant]
     Indication: PATHOGEN RESISTANCE
     Route: 042

REACTIONS (2)
  - DRUG RESISTANCE [None]
  - DRUG INEFFECTIVE [None]
